FAERS Safety Report 5132964-5 (Version None)
Quarter: 2006Q4

REPORT INFORMATION
  Report Type: 
  Country: None (occurrence: None)
  Receive Date: 20061019
  Receipt Date: 20061019
  Transmission Date: 20070319
  Serious: No
  Sender: FDA-Public Use
  Company Number: None

PATIENT
  Age: 75 Year
  Sex: Male
  Weight: 74.3899 kg

DRUGS (1)
  1. BROMOCRIPTINE MESYLATE [Suspect]
     Indication: PITUITARY TUMOUR BENIGN
     Dosage: 2 5MG CAPSULE 3 TIMES A DAY PO
     Route: 048
     Dates: start: 19970109, end: 20061001

REACTIONS (2)
  - LABORATORY TEST ABNORMAL [None]
  - PHARMACEUTICAL PRODUCT COUNTERFEIT [None]
